FAERS Safety Report 4322792-2 (Version None)
Quarter: 2004Q1

REPORT INFORMATION
  Report Type: 
  Country: None (occurrence: None)
  Receive Date: 20040322
  Receipt Date: 20040127
  Transmission Date: 20041129
  Serious: No
  Sender: FDA-Public Use
  Company Number: US-JNJFOC-20040105826

PATIENT
  Age: 22 Year
  Sex: Female
  Weight: 53.5244 kg

DRUGS (1)
  1. ORTHO TRI-CYCLEN LO [Suspect]
     Indication: CONTRACEPTION
     Dosage: 1 DOSE, 1 IN 1 DAY, ORAL
     Route: 048
     Dates: start: 20030831

REACTIONS (5)
  - ABDOMINAL PAIN [None]
  - DYSMENORRHOEA [None]
  - HEADACHE [None]
  - MUSCLE CRAMP [None]
  - NAUSEA [None]
